FAERS Safety Report 6389628-X (Version None)
Quarter: 2009Q4

REPORT INFORMATION
  Report Type: 
  Country: None (occurrence: None)
  Receive Date: 20091006
  Receipt Date: 20090922
  Transmission Date: 20100525
  Serious: Yes (Hospitalization)
  Sender: FDA-Public Use
  Company Number: PHHY2009CA19232

PATIENT
  Sex: Female

DRUGS (5)
  1. EXJADE [Suspect]
     Indication: MYELODYSPLASTIC SYNDROME
     Dosage: 1250 MG, UNK
     Route: 048
     Dates: start: 20080514, end: 20090512
  2. EXJADE [Suspect]
     Indication: IRON OVERLOAD
     Dosage: UNK
     Dates: start: 20090601, end: 20090901
  3. EXJADE [Suspect]
     Dosage: UNK
     Dates: start: 20090909, end: 20090914
  4. CALCIUM [Concomitant]
     Dosage: 1 TABLET PER DAY
     Route: 048
  5. MULTI-VITAMINS [Concomitant]
     Dosage: 1 TABLET DAILY
     Route: 048

REACTIONS (4)
  - BREAST LUMP REMOVAL [None]
  - BREAST MASS [None]
  - CONSTIPATION [None]
  - DIARRHOEA [None]
